FAERS Safety Report 23566124 (Version 1)
Quarter: 2024Q1

REPORT INFORMATION
  Report Type: Spontaneous
  Country: CA (occurrence: CA)
  Receive Date: 20240226
  Receipt Date: 20240226
  Transmission Date: 20240410
  Serious: Yes (Hospitalization, Other)
  Sender: FDA-Public Use
  Company Number: CA-009507513-2402CAN006978

PATIENT
  Age: 62 Year
  Sex: Female

DRUGS (1)
  1. KEYTRUDA [Suspect]
     Active Substance: PEMBROLIZUMAB
     Dosage: UNK
     Route: 065

REACTIONS (5)
  - Pneumonia [Recovering/Resolving]
  - Asthenia [Recovering/Resolving]
  - Blood pressure decreased [Recovering/Resolving]
  - General physical health deterioration [Recovering/Resolving]
  - Vomiting [Recovering/Resolving]
